FAERS Safety Report 15489553 (Version 1)
Quarter: 2018Q4

REPORT INFORMATION
  Report Type: Spontaneous
  Country: US (occurrence: US)
  Receive Date: 20181011
  Receipt Date: 20181011
  Transmission Date: 20190205
  Serious: Yes (Death, Hospitalization)
  Sender: FDA-Public Use
  Company Number: US-CELGENEUS-USA-20181001649

PATIENT
  Age: 82 Year
  Sex: Male

DRUGS (2)
  1. POMALYST [Suspect]
     Active Substance: POMALIDOMIDE
     Indication: MYELOFIBROSIS
     Dosage: 2 MG
     Route: 048
     Dates: start: 201808
  2. POMALYST [Suspect]
     Active Substance: POMALIDOMIDE
     Dosage: 2 MG
     Route: 048
     Dates: start: 20180919

REACTIONS (1)
  - Death [Fatal]

NARRATIVE: CASE EVENT DATE: 20181001
